FAERS Safety Report 10278139 (Version 3)
Quarter: 2014Q3

REPORT INFORMATION
  Report Type: Spontaneous
  Country: US (occurrence: US)
  Receive Date: 20140704
  Receipt Date: 20140901
  Transmission Date: 20150326
  Serious: Yes (Other)
  Sender: FDA-Public Use
  Company Number: PHEH2014US013300

PATIENT
  Sex: Female

DRUGS (5)
  1. ZOMETA [Suspect]
     Active Substance: ZOLEDRONIC ACID
     Indication: PLASMA CELL MYELOMA
     Dosage: 4 MG, QMO
     Route: 042
     Dates: start: 20050720, end: 200701
  2. ZOMETA [Suspect]
     Active Substance: ZOLEDRONIC ACID
     Dosage: UNK UKN, UNK
     Route: 042
     Dates: start: 20110606
  3. ZOMETA [Suspect]
     Active Substance: ZOLEDRONIC ACID
     Indication: BONE LESION
     Dosage: UNK UKN, UNK
     Route: 042
     Dates: end: 20080107
  4. ZOMETA [Suspect]
     Active Substance: ZOLEDRONIC ACID
     Dosage: UNK UKN, UNK
     Route: 042
     Dates: end: 2009
  5. AREDIA [Suspect]
     Active Substance: PAMIDRONATE DISODIUM
     Dosage: 90 MG, QMO
     Route: 042
     Dates: start: 199703

REACTIONS (28)
  - Photophobia [Unknown]
  - Pain in extremity [Unknown]
  - Polyuria [Unknown]
  - Temperature intolerance [Unknown]
  - Musculoskeletal pain [Unknown]
  - Dysuria [Unknown]
  - Dysphoria [Unknown]
  - Stress fracture [Unknown]
  - Second primary malignancy [Unknown]
  - Myopia [Unknown]
  - Vaginal prolapse [Unknown]
  - Upper-airway cough syndrome [Unknown]
  - Osteosclerosis [Unknown]
  - Pelvic discomfort [Unknown]
  - Stomatitis [Unknown]
  - Genital atrophy [Unknown]
  - Metatarsalgia [Unknown]
  - Osteonecrosis of jaw [Unknown]
  - Sleep disorder [Unknown]
  - Dyspareunia [Unknown]
  - Pelvic prolapse [Unknown]
  - Squamous cell carcinoma [Unknown]
  - Frustration [Unknown]
  - Micturition urgency [Unknown]
  - Osteoarthritis [Unknown]
  - Foot deformity [Unknown]
  - Asthma [Unknown]
  - Astigmatism [Unknown]
